FAERS Safety Report 6827725-2 (Version None)
Quarter: 2010Q3

REPORT INFORMATION
  Report Type: 
  Country: None (occurrence: None)
  Receive Date: 20100709
  Receipt Date: 20070125
  Transmission Date: 20110219
  Serious: No
  Sender: FDA-Public Use
  Company Number: US-PFIZER INC-2007007345

PATIENT
  Sex: Female
  Weight: 117.03 kg

DRUGS (10)
  1. CHANTIX [Suspect]
     Indication: EX-TOBACCO USER
     Dates: start: 20070123
  2. FUROSEMIDE [Concomitant]
     Dosage: 2 EVERY 2 DAYS
  3. ISOSORBIDE [Concomitant]
  4. POTASSIUM CHLORIDE [Concomitant]
     Dosage: 2 EVERY 2 DAYS
  5. AVANDIA [Concomitant]
     Dosage: 2 EVERY 2 DAYS
  6. CYMBALTA [Concomitant]
  7. ATENOLOL [Concomitant]
  8. ACETYLSALICYLIC ACID [Concomitant]
  9. MULTI-VITAMINS [Concomitant]
  10. LISINOPRIL [Concomitant]

REACTIONS (2)
  - NAUSEA [None]
  - VOMITING [None]
